FAERS Safety Report 23192148 (Version 1)
Quarter: 2023Q4

REPORT INFORMATION
  Report Type: Spontaneous
  Country: US (occurrence: None)
  Receive Date: 20231116
  Receipt Date: 20231116
  Transmission Date: 20240110
  Serious: Yes (Death)
  Sender: FDA-Public Use
  Company Number: None

PATIENT
  Age: 77 Year
  Sex: Male

DRUGS (17)
  1. PROCRIT [Suspect]
     Active Substance: ERYTHROPOIETIN
     Indication: Nephrogenic anaemia
     Dosage: OTHER QUANTITY : 2000UNIT/ML;?FREQUENCY : MONTHLY;?
     Dates: start: 20230531, end: 20231113
  2. ANTIFUNGAL CRE FOOT [Concomitant]
  3. ATORVASTATIN [Concomitant]
  4. CARVEDILOL [Concomitant]
  5. CLOPIDOGREL [Concomitant]
  6. DOXAZOSIN [Concomitant]
     Active Substance: DOXAZOSIN MESYLATE
  7. FUROSEMIDE [Concomitant]
  8. HUMALOG INJ [Concomitant]
  9. IRON TAB [Concomitant]
  10. LANTUS INJ [Concomitant]
  11. LISINOPRIL TAB [Concomitant]
  12. OCUVITE CAP ADULT [Concomitant]
  13. PROBIOTIC CAP [Concomitant]
  14. SODIUM BICAR [Concomitant]
  15. SYMBICORT AER [Concomitant]
  16. VENTOLIN HFA AER [Concomitant]
  17. VITAMIN D TAB [Concomitant]

REACTIONS (1)
  - Death [None]

NARRATIVE: CASE EVENT DATE: 20231113
